FAERS Safety Report 8835523 (Version 2)
Quarter: 2015Q3

REPORT INFORMATION
  Report Type: Report from Study
  Country: US (occurrence: US)
  Receive Date: 20121011
  Receipt Date: 20150805
  Transmission Date: 20151125
  Serious: Yes (Other)
  Sender: FDA-Public Use
  Company Number: US-ROCHE-1132714

PATIENT
  Sex: Female
  Weight: 79 kg

DRUGS (26)
  1. LORAZEPAM. [Concomitant]
     Active Substance: LORAZEPAM
  2. AMOXICILLIN. [Concomitant]
     Active Substance: AMOXICILLIN
  3. CODEINE [Concomitant]
     Active Substance: CODEINE
  4. NUTROPIN AQ [Suspect]
     Active Substance: SOMATROPIN
     Route: 058
  5. THYROID [Concomitant]
     Active Substance: LEVOTHYROXINE\LIOTHYRONINE
     Indication: HYPOTHYROIDISM
     Route: 048
  6. POTASSIUM CHLORIDE. [Concomitant]
     Active Substance: POTASSIUM CHLORIDE
  7. NUTROPIN AQ [Suspect]
     Active Substance: SOMATROPIN
     Indication: GROWTH HORMONE DEFICIENCY
     Route: 058
  8. NUTROPIN AQ [Suspect]
     Active Substance: SOMATROPIN
     Indication: DWARFISM
     Route: 058
  9. NUTROPIN AQ [Suspect]
     Active Substance: SOMATROPIN
     Route: 058
  10. NUTROPIN AQ [Suspect]
     Active Substance: SOMATROPIN
     Route: 058
  11. PHENTERMINE. [Concomitant]
     Active Substance: PHENTERMINE
  12. MAGNESIUM OXIDE. [Concomitant]
     Active Substance: MAGNESIUM OXIDE
  13. TRAMADOL. [Concomitant]
     Active Substance: TRAMADOL
  14. NUTROPIN AQ [Suspect]
     Active Substance: SOMATROPIN
     Route: 058
  15. CENESTIN [Concomitant]
     Active Substance: ESTROGENS, CONJUGATED SYNTHETIC A
     Route: 065
  16. BIPHETAMINE [Concomitant]
     Route: 048
  17. FASTIN [Concomitant]
     Active Substance: PHENTERMINE HYDROCHLORIDE
  18. LORAZEPAM. [Concomitant]
     Active Substance: LORAZEPAM
  19. KETOPROFEN. [Concomitant]
     Active Substance: KETOPROFEN
  20. NUTROPIN AQ [Suspect]
     Active Substance: SOMATROPIN
     Route: 058
  21. NUTROPIN AQ [Suspect]
     Active Substance: SOMATROPIN
     Route: 058
  22. NUTROPIN AQ [Suspect]
     Active Substance: SOMATROPIN
     Route: 058
  23. NUTROPIN AQ [Suspect]
     Active Substance: SOMATROPIN
     Route: 058
  24. NUTROPIN AQ [Suspect]
     Active Substance: SOMATROPIN
     Route: 058
  25. XENICAL [Concomitant]
     Active Substance: ORLISTAT
  26. ASPIRIN. [Concomitant]
     Active Substance: ASPIRIN

REACTIONS (9)
  - Meningitis [Unknown]
  - Tooth abscess [Unknown]
  - Spinal column stenosis [Unknown]
  - Road traffic accident [Unknown]
  - Roseola [Unknown]
  - Growth accelerated [Unknown]
  - Deafness [Not Recovered/Not Resolved]
  - Head injury [Not Recovered/Not Resolved]
  - Feeling abnormal [Unknown]
